FAERS Safety Report 7156027-2 (Version None)
Quarter: 2010Q4

REPORT INFORMATION
  Report Type: 
  Country: None (occurrence: None)
  Receive Date: 20101214
  Receipt Date: 20101206
  Transmission Date: 20110411
  Serious: Yes (Hospitalization, Other)
  Sender: FDA-Public Use
  Company Number: US-JNJCH-2010028168

PATIENT
  Age: 37 Year
  Sex: Male
  Weight: 74.8 kg

DRUGS (5)
  1. BENADRYL [Suspect]
     Indication: SEASONAL ALLERGY
     Dosage: TEXT:TWO TABLETS FOUR TIMES A DAY AS NEEDED
     Route: 048
     Dates: start: 20100701, end: 20101203
  2. TETRACYCLINE [Suspect]
     Indication: HELICOBACTER INFECTION
     Dosage: TEXT:UNKNOWN
     Route: 065
     Dates: start: 20100719, end: 20100929
  3. PENICILLIN [Suspect]
     Indication: HELICOBACTER INFECTION
     Dosage: TEXT:UNKNOWN
     Route: 065
     Dates: start: 20100719, end: 20100929
  4. AMOXICILLIN [Suspect]
     Indication: HELICOBACTER INFECTION
     Dosage: TEXT:UNKNOWN
     Route: 065
     Dates: start: 20100719, end: 20100929
  5. ANTIBIOTICS [Suspect]
     Indication: HELICOBACTER INFECTION
     Dosage: TEXT:UNKNOWN
     Route: 065
     Dates: start: 20100923, end: 20100929

REACTIONS (3)
  - CONVULSION [None]
  - INGROWN HAIR [None]
  - RECURRING SKIN BOILS [None]
